FAERS Safety Report 17989753 (Version 3)
Quarter: 2020Q3

REPORT INFORMATION
  Report Type: Spontaneous
  Country: AT (occurrence: AT)
  Receive Date: 20200707
  Receipt Date: 20200722
  Transmission Date: 20201103
  Serious: Yes (Hospitalization, Other)
  Sender: FDA-Public Use
  Company Number: AT-TAKEDA-2020TUS029222

PATIENT
  Age: 57 Year
  Sex: Male
  Weight: 88 kg

DRUGS (8)
  1. EDRONAX [Concomitant]
     Active Substance: REBOXETINE MESYLATE
     Indication: DEPRESSION
     Dosage: 4 MILLIGRAM
     Route: 065
     Dates: start: 2005
  2. URSOFALK [Concomitant]
     Active Substance: URSODIOL
     Dosage: UNK
     Route: 048
     Dates: end: 2020
  3. BRINTELLIX [Suspect]
     Active Substance: VORTIOXETINE HYDROBROMIDE
     Indication: DEPRESSION
     Dosage: 20 MILLIGRAM, QD
     Route: 065
     Dates: start: 202001, end: 2020
  4. TRAZODONE HYDROCHLORIDE. [Suspect]
     Active Substance: TRAZODONE HYDROCHLORIDE
     Indication: DEPRESSION
     Dosage: 100 MILLIGRAM, QD
     Route: 048
     Dates: end: 2020
  5. AQUAPHORIL [Suspect]
     Active Substance: XIPAMIDE
     Dosage: UNK
     Route: 048
     Dates: end: 2020
  6. AQUAPHORIL [Suspect]
     Active Substance: XIPAMIDE
     Indication: DEPRESSION
     Dosage: UNK
     Route: 065
     Dates: start: 2010
  7. EDRONAX [Concomitant]
     Active Substance: REBOXETINE MESYLATE
     Dosage: 4 MILLIGRAM, QD
     Route: 065
     Dates: end: 2020
  8. URSOFALK [Concomitant]
     Active Substance: URSODIOL
     Indication: DEPRESSION
     Dosage: UNK
     Route: 065
     Dates: end: 2005

REACTIONS (4)
  - Abdominal distension [Unknown]
  - Regurgitation [Unknown]
  - Ileus paralytic [Unknown]
  - Waist circumference increased [Unknown]

NARRATIVE: CASE EVENT DATE: 20200611
